FAERS Safety Report 9685413 (Version 1)
Quarter: 2013Q4

REPORT INFORMATION
  Report Type: Spontaneous
  Country: US (occurrence: US)
  Receive Date: 20131113
  Receipt Date: 20131113
  Transmission Date: 20140711
  Serious: No
  Sender: FDA-Public Use
  Company Number: US-TEVA-409025USA

PATIENT
  Sex: Male

DRUGS (1)
  1. DESMOPRESSIN [Suspect]
     Dates: end: 201305

REACTIONS (4)
  - Pruritus [Unknown]
  - Skin irritation [Unknown]
  - Dry skin [Unknown]
  - Skin irritation [Unknown]
